FAERS Safety Report 7005084-2 (Version None)
Quarter: 2010Q3

REPORT INFORMATION
  Report Type: 
  Country: None (occurrence: None)
  Receive Date: 20100921
  Receipt Date: 20100910
  Transmission Date: 20110219
  Serious: Yes (Other)
  Sender: FDA-Public Use
  Company Number: PHHY2010FR60746

PATIENT
  Sex: Female

DRUGS (1)
  1. FEMARA [Suspect]
     Indication: BREAST CANCER
     Dosage: 2.5 MG, QD
     Dates: start: 20100501

REACTIONS (4)
  - DIZZINESS [None]
  - KINESITHERAPY [None]
  - VESTIBULAR DISORDER [None]
  - VISUAL IMPAIRMENT [None]
